FAERS Safety Report 7398889-X (Version None)
Quarter: 2011Q2

REPORT INFORMATION
  Report Type: 
  Country: None (occurrence: None)
  Receive Date: 20110407
  Receipt Date: 20110324
  Transmission Date: 20111010
  Serious: Yes (Hospitalization, Disabling)
  Sender: FDA-Public Use
  Company Number: SE-CELGENEUS-150-21880-11032918

PATIENT
  Sex: Male
  Weight: 74.9 kg

DRUGS (8)
  1. DELTISON [Suspect]
     Indication: MULTIPLE MYELOMA
     Dosage: 26.6667 MILLIGRAM
     Route: 048
  2. ACETYLSALICYLSYRA [Concomitant]
     Indication: PROPHYLAXIS
     Dosage: 75 MILLIGRAM
     Route: 048
     Dates: start: 20101102
  3. CALCIUMCARBONAT [Concomitant]
     Indication: PROPHYLAXIS
     Dosage: 500MG/400IE
     Route: 048
     Dates: start: 20090407
  4. CIPROFLOXACIN HCL [Concomitant]
     Route: 065
     Dates: start: 20110101
  5. PHENOXYMETHYLPENICILLIN [Concomitant]
     Indication: INFECTION
     Dosage: 1 GRAM
     Route: 048
     Dates: start: 20110210, end: 20110221
  6. REVLIMID [Suspect]
     Dosage: 25 MILLIGRAM
     Route: 048
     Dates: start: 20100928
  7. REVLIMID [Suspect]
     Dosage: 25 MILLIGRAM
     Route: 048
     Dates: start: 20110118, end: 20110207
  8. FLOXACILLIN SODIUM [Concomitant]
     Route: 065
     Dates: start: 20110101

REACTIONS (1)
  - ERYSIPELAS [None]
